FAERS Safety Report 7342584-X (Version None)
Quarter: 2011Q1

REPORT INFORMATION
  Report Type: 
  Country: None (occurrence: None)
  Receive Date: 20110310
  Receipt Date: 20110223
  Transmission Date: 20110831
  Serious: Yes (Hospitalization)
  Sender: FDA-Public Use
  Company Number: US-BAYER-2010-002206

PATIENT
  Sex: Female
  Weight: 56.689 kg

DRUGS (7)
  1. ADVAIR DISKUS 100/50 [Concomitant]
     Indication: ASTHMA
     Dosage: UNK
     Route: 055
     Dates: start: 20070901, end: 20090501
  2. YAZ [Suspect]
     Indication: MENSTRUAL CYCLE MANAGEMENT
     Dosage: UNK
     Route: 048
     Dates: start: 20080501, end: 20090901
  3. SINGULAIR [Concomitant]
     Indication: ASTHMA
     Dosage: 10 MG, UNK
     Route: 048
     Dates: start: 20060101
  4. ALBUTEROL [Concomitant]
     Indication: ASTHMA
     Dosage: UNK
     Route: 055
     Dates: start: 20060101
  5. DICYCLOMINE [Concomitant]
     Dosage: 10 MG, QID
     Route: 048
     Dates: start: 20090914
  6. SPRINTEC [Concomitant]
     Dosage: UNK
     Dates: start: 20090901
  7. ZOLOFT [Concomitant]
     Indication: DEPRESSION
     Dosage: 50 MG, UNK
     Route: 048
     Dates: start: 20090901

REACTIONS (5)
  - BILIARY DYSKINESIA [None]
  - NAUSEA [None]
  - DIARRHOEA [None]
  - EMOTIONAL DISTRESS [None]
  - ABDOMINAL PAIN [None]
